FAERS Safety Report 7724364-6 (Version None)
Quarter: 2011Q3

REPORT INFORMATION
  Report Type: 
  Country: None (occurrence: None)
  Receive Date: 20110901
  Receipt Date: 20110823
  Transmission Date: 20111222
  Serious: Yes (Hospitalization)
  Sender: FDA-Public Use
  Company Number: BR-ASTRAZENECA-2011SE50799

PATIENT
  Age: 72 Year
  Sex: Male
  Weight: 66 kg

DRUGS (2)
  1. NEXIUM [Suspect]
     Indication: PULMONARY FIBROSIS
     Dosage: OD
     Route: 048
     Dates: start: 20100101
  2. NEXIUM [Suspect]
     Indication: GASTROOESOPHAGEAL REFLUX DISEASE
     Dosage: OD
     Route: 048
     Dates: start: 20100101

REACTIONS (2)
  - ARTERIAL INJURY [None]
  - ANGINA PECTORIS [None]
